FAERS Safety Report 15087390 (Version 1)
Quarter: 2018Q3

REPORT INFORMATION
  Report Type: Other
  Country: US (occurrence: US)
  Receive Date: 20180628
  Receipt Date: 20180628
  Transmission Date: 20181010
  Serious: No
  Sender: FDA-Public Use
  Company Number: US-NOSTRUM LABORATORIES, INC.-2050160

PATIENT

DRUGS (1)
  1. VENLAFAXINE HYDROCHLORIDE. [Suspect]
     Active Substance: VENLAFAXINE HYDROCHLORIDE
     Indication: DEPRESSION
     Route: 048

REACTIONS (8)
  - Depression [Unknown]
  - Aggression [None]
  - Somnolence [None]
  - Condition aggravated [None]
  - Product substitution issue [None]
  - Depression [None]
  - Drug ineffective [Recovered/Resolved]
  - Mood altered [Unknown]
